FAERS Safety Report 5719744-4 (Version None)
Quarter: 2008Q2

REPORT INFORMATION
  Report Type: 
  Country: None (occurrence: None)
  Receive Date: 20080428
  Receipt Date: 20080421
  Transmission Date: 20081010
  Serious: Yes (Other)
  Sender: FDA-Public Use
  Company Number: PHRM2008FR01184

PATIENT
  Age: 14 Year
  Sex: Male
  Weight: 90 kg

DRUGS (6)
  1. CLOZAPINE [Suspect]
     Indication: PSYCHOTIC DISORDER
     Dosage: 300 MG DAILY
     Route: 048
     Dates: start: 20060108, end: 20071028
  2. CLOZAPINE [Suspect]
     Dosage: 400 MG DAILY
     Route: 048
     Dates: start: 20080306
  3. CLOZAPINE [Suspect]
     Dosage: 500 MG DAILY
     Route: 048
  4. CLOZAPINE [Suspect]
     Dosage: 350 MG DAILY
     Route: 048
     Dates: start: 20071029, end: 20080305
  5. LOXAPINE HCL [Suspect]
     Indication: AGITATION
     Dosage: 50 MG DAILY
     Route: 048
     Dates: start: 20061231
  6. LEPTICUR [Concomitant]
     Dosage: 1 DF, PRN

REACTIONS (3)
  - CLONUS [None]
  - HYPOTONIA [None]
  - MALAISE [None]
